FAERS Safety Report 8461454-7 (Version None)
Quarter: 2012Q2

REPORT INFORMATION
  Report Type: 
  Country: None (occurrence: None)
  Receive Date: 20120625
  Receipt Date: 20120618
  Transmission Date: 20120825
  Serious: No
  Sender: FDA-Public Use
  Company Number: US-PFIZER INC-2012146381

PATIENT
  Sex: Male

DRUGS (1)
  1. XALKORI [Suspect]
     Indication: MALIGNANT RESPIRATORY TRACT NEOPLASM
     Dosage: 250 MG, 2X/DAY
     Dates: start: 20120103

REACTIONS (1)
  - NEUROPATHY PERIPHERAL [None]
